FAERS Safety Report 21301847 (Version 1)
Quarter: 2022Q3

REPORT INFORMATION
  Report Type: Spontaneous
  Country: JP (occurrence: JP)
  Receive Date: 20220907
  Receipt Date: 20220907
  Transmission Date: 20221027
  Serious: Yes (Other)
  Sender: FDA-Public Use
  Company Number: JP-PFIZER INC-202201104490

PATIENT
  Age: 81 Year
  Sex: Male

DRUGS (5)
  1. BEVACIZUMAB [Suspect]
     Active Substance: BEVACIZUMAB
     Indication: Mixed hepatocellular cholangiocarcinoma
     Dosage: 15 MG/KG OF BODY WEIGHT; EVERY 3 WEEKS FOR 1ST AND 2ND CYCLE
  2. BEVACIZUMAB [Suspect]
     Active Substance: BEVACIZUMAB
     Dosage: 15 MG/KG OF BODY WEIGHT; THERAPY RESUMED AT THE SIXTH AND SEVENTH CYCLE
  3. BEVACIZUMAB [Suspect]
     Active Substance: BEVACIZUMAB
     Dosage: 15 MG/KG OF BODY WEIGHT; AFTER THE 10TH CYCLE ATEZOLIZUMAB WAS DISCONTINUED
  4. ATEZOLIZUMAB [Concomitant]
     Active Substance: ATEZOLIZUMAB
     Indication: Mixed hepatocellular cholangiocarcinoma
     Dosage: 1200 MG; EVERY 3 WEEKS (THERAPY CONTINUED TILL 10TH CYCLE)
  5. ATEZOLIZUMAB [Concomitant]
     Active Substance: ATEZOLIZUMAB
     Dosage: AFTER THE 10TH CYCLE ATEZOLIZUMAB WAS DISCONTINUED

REACTIONS (5)
  - Ascites [Unknown]
  - Proteinuria [Unknown]
  - Fatigue [Unknown]
  - Decreased appetite [Unknown]
  - Off label use [Unknown]
